FAERS Safety Report 11684561 (Version 1)
Quarter: 2015Q4

REPORT INFORMATION
  Report Type: Spontaneous
  Country: CA (occurrence: CA)
  Receive Date: 20151029
  Receipt Date: 20151029
  Transmission Date: 20160304
  Serious: Yes (Death, Hospitalization)
  Sender: FDA-Public Use
  Company Number: CA-TEVA-603776ACC

PATIENT
  Age: 46 Year
  Sex: Female

DRUGS (2)
  1. TEVA-CARBAMAZEPINE [Suspect]
     Active Substance: CARBAMAZEPINE
     Indication: SEIZURE
     Dosage: 300 MILLIGRAM DAILY;
     Route: 048
  2. FERROUS FUMARATE [Concomitant]
     Active Substance: FERROUS FUMARATE

REACTIONS (6)
  - Acute hepatic failure [Fatal]
  - Vaginal haemorrhage [Fatal]
  - Asthenia [Fatal]
  - Jaundice [Fatal]
  - Asterixis [Fatal]
  - Ocular icterus [Fatal]
